FAERS Safety Report 21396137 (Version 1)
Quarter: 2022Q3

REPORT INFORMATION
  Report Type: Spontaneous
  Country: US (occurrence: US)
  Receive Date: 20220930
  Receipt Date: 20220930
  Transmission Date: 20221027
  Serious: No
  Sender: FDA-Public Use
  Company Number: US-009507513-2209USA010616

PATIENT
  Age: 2 Year
  Sex: Male

DRUGS (2)
  1. ZOLINZA [Suspect]
     Active Substance: VORINOSTAT
     Indication: Acute myeloid leukaemia refractory
     Dosage: UNK
     Route: 048
  2. DECITABINE [Concomitant]
     Active Substance: DECITABINE
     Indication: Acute myeloid leukaemia refractory

REACTIONS (2)
  - Product use in unapproved indication [Unknown]
  - Product use issue [Unknown]
